FAERS Safety Report 7141410-1 (Version None)
Quarter: 2010Q4

REPORT INFORMATION
  Report Type: 
  Country: None (occurrence: None)
  Receive Date: 20101203
  Receipt Date: 20101203
  Transmission Date: 20110411
  Serious: No
  Sender: FDA-Public Use
  Company Number: None

PATIENT
  Sex: Female
  Weight: 56.8 kg

DRUGS (3)
  1. METHOTREXATE [Suspect]
  2. RITUXIMAB (MOAB C2B8 ANTI CD20, CHIMERIC) [Suspect]
  3. TEMOZOLOMIDE [Suspect]

REACTIONS (1)
  - PLATELET COUNT DECREASED [None]
